FAERS Safety Report 6079788-2 (Version None)
Quarter: 2009Q1

REPORT INFORMATION
  Report Type: 
  Country: None (occurrence: None)
  Receive Date: 20090212
  Receipt Date: 20090128
  Transmission Date: 20090719
  Serious: Yes (Death, Hospitalization, Disabling)
  Sender: FDA-Public Use
  Company Number: 2009000272

PATIENT
  Age: 35 Year
  Sex: Female

DRUGS (7)
  1. TARCEVA [Suspect]
     Indication: ADENOCARCINOMA
     Dosage: 50 MG, QD, ORAL
     Route: 048
     Dates: start: 20081015
  2. CARBOPLATIN [Suspect]
  3. GEMCITABINE [Suspect]
  4. TAXOTERE [Suspect]
  5. VALPROATE SODIUM [Concomitant]
  6. DEXAMETHASONE TAB [Concomitant]
  7. KEPPRA [Concomitant]

REACTIONS (5)
  - BILE DUCT CANCER [None]
  - CONDITION AGGRAVATED [None]
  - CONVULSION [None]
  - MALIGNANT NEOPLASM PROGRESSION [None]
  - NO THERAPEUTIC RESPONSE [None]
